FAERS Safety Report 9189265 (Version 2)
Quarter: 2013Q2

REPORT INFORMATION
  Report Type: Spontaneous
  Country: US (occurrence: None)
  Receive Date: 20130322
  Receipt Date: 20130507
  Transmission Date: 20140414
  Serious: Yes (Death, Hospitalization)
  Sender: FDA-Public Use
  Company Number: US-JNJFOC-20130310101

PATIENT
  Age: 49 Year
  Sex: Female
  Weight: 49.4 kg

DRUGS (3)
  1. DACOGEN [Suspect]
     Indication: ACUTE MYELOID LEUKAEMIA
     Dosage: 20 MG/M2, IN 1 CYCLICAL, INTRAVENOUS
     Route: 042
     Dates: start: 20130214, end: 20130218
  2. IDARUBICIN [Suspect]
     Indication: ACUTE MYELOID LEUKAEMIA
     Dosage: 12 MG/M2, IN 1 CYCLICAL, INTRAVENOUS
     Dates: start: 20130219, end: 20130221
  3. CYTARABINE [Suspect]
     Indication: ACUTE MYELOID LEUKAEMIA
     Dosage: 100 MG/M2, IN 1 CYCLICAL, INTRAVENOUS
     Dates: start: 20130219, end: 20130222

REACTIONS (6)
  - Platelet count decreased [None]
  - Abdominal pain [None]
  - Intracranial pressure increased [None]
  - Brain herniation [None]
  - Haemorrhage intracranial [None]
  - Bacteraemia [None]
